FAERS Safety Report 5115633-7 (Version None)
Quarter: 2006Q3

REPORT INFORMATION
  Report Type: 
  Country: None (occurrence: None)
  Receive Date: 20060925
  Receipt Date: 20060712
  Transmission Date: 20061208
  Serious: Yes (Hospitalization)
  Sender: FDA-Public Use
  Company Number: 2006-07-0663

PATIENT
  Age: 63 Year
  Sex: Female
  Weight: 78.4723 kg

DRUGS (11)
  1. PEG-INTRON [Suspect]
     Indication: HEPATITIS C
     Dosage: SC
     Route: 058
     Dates: start: 20060607, end: 20060809
  2. REBETOL [Suspect]
     Indication: HEPATITIS C
     Dosage: PO
     Route: 048
     Dates: start: 20060607, end: 20060809
  3. AMITRIPTYLINE HYDROCHLORIDE [Concomitant]
  4. BUSPAR [Concomitant]
  5. DOXAZOSIN MESYLATE [Concomitant]
  6. ESTRATEST [Concomitant]
  7. HYZAAR [Concomitant]
  8. LEXAPRO [Concomitant]
  9. LORATADINE (S-P) [Concomitant]
  10. MOBIC [Concomitant]
  11. CELEBREX [Concomitant]

REACTIONS (19)
  - ANKLE FRACTURE [None]
  - BLOOD COUNT ABNORMAL [None]
  - CRYING [None]
  - DEHYDRATION [None]
  - DEPRESSION [None]
  - DISTURBANCE IN ATTENTION [None]
  - DIZZINESS [None]
  - DYSGEUSIA [None]
  - DYSPHAGIA [None]
  - FALL [None]
  - FEELING HOT [None]
  - LOSS OF CONSCIOUSNESS [None]
  - NAUSEA [None]
  - PHARYNGOLARYNGEAL PAIN [None]
  - SCREAMING [None]
  - SINUS DISORDER [None]
  - THROAT IRRITATION [None]
  - VISUAL DISTURBANCE [None]
  - WEIGHT DECREASED [None]
